FAERS Safety Report 8179394-X (Version None)
Quarter: 2012Q1

REPORT INFORMATION
  Report Type: 
  Country: None (occurrence: None)
  Receive Date: 20120302
  Receipt Date: 20120223
  Transmission Date: 20120608
  Serious: Yes (Other)
  Sender: FDA-Public Use
  Company Number: US-BAYER-2011-083378

PATIENT
  Age: 32 Year
  Sex: Female
  Weight: 90 kg

DRUGS (1)
  1. YAZ [Suspect]
     Indication: PRODUCT USED FOR UNKNOWN INDICATION
     Dosage: UNK
     Dates: start: 20070829, end: 20080301

REACTIONS (6)
  - PAIN [None]
  - INJURY [None]
  - ABDOMINAL PAIN [None]
  - CHOLELITHIASIS [None]
  - GALLBLADDER DISORDER [None]
  - NAUSEA [None]
